FAERS Safety Report 6738308-7 (Version None)
Quarter: 2010Q2

REPORT INFORMATION
  Report Type: 
  Country: None (occurrence: None)
  Receive Date: 20100524
  Receipt Date: 20100511
  Transmission Date: 20101027
  Serious: Yes (Other)
  Sender: FDA-Public Use
  Company Number: CA-MERCK-1005USA01566

PATIENT
  Age: 58 Year
  Sex: Female

DRUGS (10)
  1. HYDRODIURIL [Suspect]
     Route: 048
  2. ACAMPROSATE CALCIUM [Concomitant]
     Route: 065
  3. ATENOLOL [Concomitant]
     Route: 065
  4. MIRTAZAPINE [Concomitant]
     Route: 065
  5. QUETIAPINE FUMARATE [Suspect]
     Route: 065
  6. ROSUVASTATIN CALCIUM [Concomitant]
     Route: 065
  7. RANITIDINE [Concomitant]
     Route: 065
  8. QUETIAPINE FUMARATE [Suspect]
     Route: 065
  9. CITALOPRAM [Suspect]
     Route: 065
  10. CLONAZEPAM [Concomitant]
     Route: 065

REACTIONS (3)
  - ELECTROCARDIOGRAM QT PROLONGED [None]
  - HYPOKALAEMIA [None]
  - VENTRICULAR FIBRILLATION [None]
